FAERS Safety Report 6450885-2 (Version None)
Quarter: 2009Q4

REPORT INFORMATION
  Report Type: 
  Country: None (occurrence: None)
  Receive Date: 20091123
  Receipt Date: 20091110
  Transmission Date: 20100525
  Serious: Yes (Other)
  Sender: FDA-Public Use
  Company Number: US-PFIZER INC-2009296613

PATIENT
  Sex: Male

DRUGS (17)
  1. ZOLOFT [Suspect]
  2. TRAZODONE HCL [Suspect]
  3. DOXEPIN HCL [Suspect]
  4. MIRTAZAPINE [Suspect]
  5. PRISTIQ [Suspect]
     Indication: DEPRESSION
     Dosage: UNK
     Route: 048
     Dates: start: 20090316
  6. EFFEXOR XR [Suspect]
     Indication: DEPRESSION
     Dosage: UNK
     Route: 048
     Dates: start: 19930101
  7. WELLBUTRIN [Suspect]
  8. ZYPREXA [Suspect]
  9. SEROQUEL [Suspect]
  10. LEXAPRO [Suspect]
  11. PAROXETINE [Suspect]
  12. CYMBALTA [Suspect]
  13. PAXIL [Suspect]
  14. PROZAC [Suspect]
  15. DEPAKOTE [Suspect]
  16. VITAMINS [Concomitant]
  17. FISH OIL [Concomitant]

REACTIONS (12)
  - AGEUSIA [None]
  - CONSTIPATION [None]
  - DECREASED APPETITE [None]
  - DIARRHOEA [None]
  - DRUG EFFECT DECREASED [None]
  - DRUG INEFFECTIVE [None]
  - DRY MOUTH [None]
  - DYSKINESIA [None]
  - MUSCLE TWITCHING [None]
  - NIGHTMARE [None]
  - SUICIDE ATTEMPT [None]
  - TREMOR [None]
